FAERS Safety Report 15723189 (Version 1)
Quarter: 2018Q4

REPORT INFORMATION
  Report Type: Spontaneous
  Country: DE (occurrence: IN)
  Receive Date: 20181214
  Receipt Date: 20181214
  Transmission Date: 20190205
  Serious: Yes (Other)
  Sender: FDA-Public Use
  Company Number: DE-ELI_LILLY_AND_COMPANY-IN201812005878

PATIENT
  Age: 70 Year
  Sex: Female

DRUGS (1)
  1. OLANZAPINE. [Suspect]
     Active Substance: OLANZAPINE
     Indication: PRODUCT USED FOR UNKNOWN INDICATION
     Dosage: UNK, UNKNOWN
     Route: 065
     Dates: start: 2008

REACTIONS (8)
  - Fatigue [Not Recovered/Not Resolved]
  - Erythema [Not Recovered/Not Resolved]
  - Breast swelling [Not Recovered/Not Resolved]
  - Skin burning sensation [Not Recovered/Not Resolved]
  - Breast abscess [Not Recovered/Not Resolved]
  - Breast pain [Not Recovered/Not Resolved]
  - Muscular weakness [Not Recovered/Not Resolved]
  - Myalgia [Not Recovered/Not Resolved]

NARRATIVE: CASE EVENT DATE: 20181202
